FAERS Safety Report 9848656 (Version 1)
Quarter: 2014Q1

REPORT INFORMATION
  Report Type: Spontaneous
  Country: US (occurrence: None)
  Receive Date: 20140127
  Receipt Date: 20140127
  Transmission Date: 20141002
  Serious: No
  Sender: FDA-Public Use
  Company Number: None

PATIENT
  Age: 46 Year
  Sex: Female
  Weight: 72.58 kg

DRUGS (1)
  1. ESTRADIOL VALERATE [Suspect]
     Dosage: 1 ML WEEKLY INTO THE MUSCLE
     Dates: start: 20140112, end: 20140119

REACTIONS (4)
  - Fatigue [None]
  - Emotional disorder [None]
  - Sinusitis [None]
  - Product substitution issue [None]
